FAERS Safety Report 21064780 (Version 1)
Quarter: 2022Q3

REPORT INFORMATION
  Report Type: Spontaneous
  Country: US (occurrence: None)
  Receive Date: 20220710
  Receipt Date: 20220710
  Transmission Date: 20221027
  Serious: Yes (Hospitalization)
  Sender: FDA-Public Use
  Company Number: None

PATIENT
  Age: 69 Year
  Sex: Male
  Weight: 75.15 kg

DRUGS (5)
  1. TADALAFIL [Suspect]
     Active Substance: TADALAFIL
     Indication: Prostatomegaly
     Dosage: FREQUENCY : DAILY;?
     Route: 048
     Dates: start: 20220630, end: 20220703
  2. VALSARTAN [Concomitant]
     Active Substance: VALSARTAN
  3. MULTI VITAMIN [Concomitant]
  4. METAMUCIL [Concomitant]
  5. MAG OX [Concomitant]

REACTIONS (3)
  - Small intestinal obstruction [None]
  - Dyspepsia [None]
  - Asthenia [None]

NARRATIVE: CASE EVENT DATE: 20220703
